FAERS Safety Report 20900417 (Version 1)
Quarter: 2022Q2

REPORT INFORMATION
  Report Type: Spontaneous
  Country: US (occurrence: None)
  Receive Date: 20220531
  Receipt Date: 20220531
  Transmission Date: 20220721
  Serious: Yes (Life-Threatening)
  Sender: FDA-Public Use
  Company Number: None

PATIENT
  Age: 83 Year
  Sex: Female
  Weight: 87.1 kg

DRUGS (1)
  1. ROPINIROLE [Suspect]
     Active Substance: ROPINIROLE
     Indication: Restless legs syndrome
     Dosage: FREQUENCY : AT BEDTIME;?
     Route: 048

REACTIONS (18)
  - Restless legs syndrome [None]
  - Condition aggravated [None]
  - Femur fracture [None]
  - Comminuted fracture [None]
  - Tibia fracture [None]
  - Fibula fracture [None]
  - Ankle fracture [None]
  - Blood loss anaemia [None]
  - Pulmonary contusion [None]
  - Rib fracture [None]
  - Rib fracture [None]
  - Shock haemorrhagic [None]
  - Rhabdomyolysis [None]
  - Toxic encephalopathy [None]
  - Acute respiratory failure [None]
  - Hypocalcaemia [None]
  - Road traffic accident [None]
  - Somnolence [None]

NARRATIVE: CASE EVENT DATE: 20220422
